FAERS Safety Report 8164703 (Version 2)
Quarter: 2012Q4

REPORT INFORMATION
  Report Type: 
  Country: US (occurrence: US)
  Receive Date: 20110930
  Receipt Date: 20121126
  Transmission Date: 20130627
  Serious: Yes (Hospitalization)
  Sender: FDA-Public Use
  Company Number: US-ASTRAZENECA-2011SE49216

PATIENT
  Age: 53 Year
  Sex: Male

DRUGS (1)
  1. CRESTOR [Suspect]
     Route: 048

REACTIONS (9)
  - Diabetes mellitus [Unknown]
  - Condition aggravated [Unknown]
  - Cardiomyopathy [Unknown]
  - Cardiomegaly [Unknown]
  - Hypertension [Unknown]
  - Blood cholesterol increased [Unknown]
  - Drug dose omission [Unknown]
  - Malaise [Unknown]
  - Feeling abnormal [Unknown]
